FAERS Safety Report 13901248 (Version 6)
Quarter: 2017Q4

REPORT INFORMATION
  Report Type: Report from Study
  Country: US (occurrence: US)
  Receive Date: 20170824
  Receipt Date: 20171221
  Transmission Date: 20180320
  Serious: Yes (Death, Hospitalization, Other)
  Sender: FDA-Public Use
  Company Number: US-JNJFOC-20170126356

PATIENT
  Age: 83 Year
  Sex: Female
  Weight: 52 kg

DRUGS (13)
  1. IMBRUVICA [Suspect]
     Active Substance: IBRUTINIB
     Indication: MANTLE CELL LYMPHOMA
     Dosage: 420 MG, ONE EVERY HALF HOUR
     Route: 048
  2. LISINOPRIL DIHYDRATE [Concomitant]
     Active Substance: LISINOPRIL
     Indication: HYPERTENSION
  3. IMBRUVICA [Suspect]
     Active Substance: IBRUTINIB
     Indication: MANTLE CELL LYMPHOMA
     Route: 048
     Dates: start: 20170112, end: 2017
  4. IRON [Concomitant]
     Active Substance: IRON
  5. VITAMIN B COMPLEX [Concomitant]
     Active Substance: CYANOCOBALAMIN\DEXPANTHENOL\NIACINAMIDE\PYRIDOXINE HYDROCHLORIDE\RIBOFLAVIN 5^-PHOSPHATE SODIUM\THIAMINE HYDROCHLORIDE\VITAMIN B COMPLEX
  6. MELOXICAM. [Concomitant]
     Active Substance: MELOXICAM
  7. IMBRUVICA [Suspect]
     Active Substance: IBRUTINIB
     Indication: MANTLE CELL LYMPHOMA
     Route: 048
  8. FISH OIL [Concomitant]
     Active Substance: FISH OIL
  9. BIFIDOBACTERIUM LACTIS [Concomitant]
     Active Substance: BIFIDOBACTERIUM ANIMALIS LACTIS
  10. BIOTIN [Concomitant]
     Active Substance: BIOTIN
  11. D-3 [Concomitant]
     Active Substance: CHOLECALCIFEROL
  12. MAGNESIUM [Concomitant]
     Active Substance: MAGNESIUM
  13. FERROUS SULFATE. [Concomitant]
     Active Substance: FERROUS SULFATE

REACTIONS (44)
  - Aptyalism [Recovering/Resolving]
  - Hypoaesthesia [Unknown]
  - Drug ineffective [Unknown]
  - Anaemia [Unknown]
  - Off label use [Unknown]
  - Dysphonia [Not Recovered/Not Resolved]
  - Pain in extremity [Not Recovered/Not Resolved]
  - Pleural effusion [Unknown]
  - Hypotension [Unknown]
  - White blood cell count increased [Unknown]
  - Loss of consciousness [Not Recovered/Not Resolved]
  - Nail growth abnormal [Not Recovered/Not Resolved]
  - Chills [Not Recovered/Not Resolved]
  - Nasopharyngitis [Not Recovered/Not Resolved]
  - Asthenia [Not Recovered/Not Resolved]
  - Adverse event [Recovering/Resolving]
  - Arthralgia [Not Recovered/Not Resolved]
  - Increased tendency to bruise [Not Recovered/Not Resolved]
  - Cardiac failure congestive [Not Recovered/Not Resolved]
  - Pneumonia [Not Recovered/Not Resolved]
  - Epistaxis [Unknown]
  - Dry mouth [Not Recovered/Not Resolved]
  - Inappropriate schedule of drug administration [Unknown]
  - Delirium [Unknown]
  - Peripheral swelling [Unknown]
  - Death [Fatal]
  - Ligament sprain [Not Recovered/Not Resolved]
  - Haemoglobin abnormal [Not Recovered/Not Resolved]
  - Blood iron decreased [Unknown]
  - Dehydration [Not Recovered/Not Resolved]
  - Stomatitis [Recovered/Resolved]
  - Oral mucosal blistering [Recovered/Resolved]
  - Neoplasm skin [Recovering/Resolving]
  - Atrial fibrillation [Unknown]
  - Salivary hypersecretion [Not Recovered/Not Resolved]
  - Muscular weakness [Not Recovered/Not Resolved]
  - Blood urea increased [Recovering/Resolving]
  - Drooling [Recovering/Resolving]
  - Pyrexia [Not Recovered/Not Resolved]
  - Swollen tongue [Recovered/Resolved]
  - Confusional state [Not Recovered/Not Resolved]
  - Micturition urgency [Not Recovered/Not Resolved]
  - Bowel movement irregularity [Unknown]
  - Contusion [Unknown]

NARRATIVE: CASE EVENT DATE: 2017
